FAERS Safety Report 10483408 (Version 1)
Quarter: 2014Q3

REPORT INFORMATION
  Report Type: Spontaneous
  Country: GB (occurrence: GB)
  Receive Date: 20140930
  Receipt Date: 20140930
  Transmission Date: 20150326
  Serious: Yes (Other)
  Sender: FDA-Public Use
  Company Number: GB-AUROBINDO-AUR-APL-2014-10208

PATIENT
  Age: 58 Year
  Sex: Male
  Weight: 109.3 kg

DRUGS (2)
  1. BISOPROLOL 5 MG [Suspect]
     Active Substance: BISOPROLOL
     Indication: BLOOD PRESSURE ABNORMAL
     Dosage: 5 MG, UNK
     Route: 048
     Dates: start: 20140822, end: 20140905
  2. LISINOPRIL. [Concomitant]
     Active Substance: LISINOPRIL
     Indication: PRODUCT USED FOR UNKNOWN INDICATION
     Dosage: UNK
     Route: 065

REACTIONS (2)
  - Depression [Recovering/Resolving]
  - Suicidal ideation [Recovering/Resolving]

NARRATIVE: CASE EVENT DATE: 20140822
